FAERS Safety Report 21200654 (Version 1)
Quarter: 2022Q3

REPORT INFORMATION
  Report Type: Spontaneous
  Country: US (occurrence: US)
  Receive Date: 20220811
  Receipt Date: 20220811
  Transmission Date: 20221026
  Serious: No
  Sender: FDA-Public Use
  Company Number: US-PFIZER INC-PV202200039397

PATIENT

DRUGS (1)
  1. PAXLOVID [Suspect]
     Active Substance: NIRMATRELVIR\RITONAVIR
     Indication: COVID-19 treatment
     Dosage: UNK

REACTIONS (5)
  - Tongue injury [Recovering/Resolving]
  - Tongue discomfort [Recovering/Resolving]
  - Eating disorder [Recovering/Resolving]
  - Gingival swelling [Recovering/Resolving]
  - Dental discomfort [Recovering/Resolving]
